FAERS Safety Report 23359179 (Version 1)
Quarter: 2024Q1

REPORT INFORMATION
  Report Type: Spontaneous
  Country: US (occurrence: US)
  Receive Date: 20240102
  Receipt Date: 20240102
  Transmission Date: 20240410
  Serious: No
  Sender: FDA-Public Use
  Company Number: US-AMGEN-USASP2023233288

PATIENT
  Age: 73 Year
  Sex: Female

DRUGS (1)
  1. REPATHA [Suspect]
     Active Substance: EVOLOCUMAB
     Indication: Blood cholesterol increased
     Dosage: 140 MILLIGRAM, Q2WK
     Route: 058
     Dates: start: 202307, end: 202312

REACTIONS (11)
  - Limb mass [Recovered/Resolved]
  - Rotator cuff syndrome [Recovered/Resolved]
  - Muscular weakness [Recovered/Resolved]
  - Bursitis [Recovered/Resolved]
  - Tendonitis [Recovered/Resolved]
  - Muscle disorder [Recovered/Resolved]
  - Muscle oedema [Recovered/Resolved]
  - Bone pain [Not Recovered/Not Resolved]
  - Groin pain [Not Recovered/Not Resolved]
  - Pelvic pain [Not Recovered/Not Resolved]
  - Pain in extremity [Not Recovered/Not Resolved]

NARRATIVE: CASE EVENT DATE: 20230101
